FAERS Safety Report 4413784-3 (Version None)
Quarter: 2004Q3

REPORT INFORMATION
  Report Type: 
  Country: None (occurrence: None)
  Receive Date: 20040803
  Receipt Date: 20040707
  Transmission Date: 20050211
  Serious: Yes (Other)
  Sender: FDA-Public Use
  Company Number: FR-ROCHE-373740

PATIENT
  Age: 41 Year
  Sex: Male
  Weight: 64 kg

DRUGS (7)
  1. FUZEON [Suspect]
     Indication: HIV INFECTION
     Route: 058
     Dates: start: 20040627, end: 20040706
  2. TIPRANAVIR [Suspect]
     Indication: HIV INFECTION
     Route: 048
     Dates: start: 20040627, end: 20040706
  3. VIDEX [Concomitant]
     Indication: HIV INFECTION
     Route: 048
     Dates: start: 19991201
  4. ZIAGEN [Concomitant]
     Indication: HIV INFECTION
     Route: 048
     Dates: start: 20000301
  5. VIREAD [Concomitant]
     Indication: HIV INFECTION
     Route: 048
     Dates: start: 20011114
  6. EPIVIR [Concomitant]
     Indication: HIV INFECTION
     Route: 048
     Dates: start: 20040627, end: 20040706
  7. NORVIR [Concomitant]
     Indication: HIV INFECTION
     Route: 048
     Dates: start: 20010404

REACTIONS (5)
  - ASTHENIA [None]
  - INJECTION SITE URTICARIA [None]
  - PRURITUS [None]
  - URTICARIA [None]
  - URTICARIA GENERALISED [None]
